FAERS Safety Report 15469574 (Version 2)
Quarter: 2018Q4

REPORT INFORMATION
  Report Type: Report from Study
  Country: GB (occurrence: GB)
  Receive Date: 20181005
  Receipt Date: 20181019
  Transmission Date: 20190205
  Serious: Yes (Hospitalization)
  Sender: FDA-Public Use
  Company Number: GB-SA-2018SA264566

PATIENT
  Age: 69 Year
  Sex: Male

DRUGS (19)
  1. BLINDED NO STUDY DRUG GIVEN [Suspect]
     Active Substance: INVESTIGATIONAL PRODUCT
     Indication: MUSCULOSKELETAL STIFFNESS
     Dosage: UNK UNK, QD
     Route: 058
     Dates: start: 20180717
  2. ASPIRIN [ACETYLSALICYLIC ACID] [Concomitant]
     Active Substance: ASPIRIN
     Indication: CARDIOVASCULAR DISORDER
     Dosage: 75 MG, QD
     Route: 048
  3. ATORVASTATIN [Concomitant]
     Active Substance: ATORVASTATIN
     Indication: CARDIOVASCULAR DISORDER
     Dosage: 20 MG, QD
     Route: 048
  4. TOUJEO [Concomitant]
     Active Substance: INSULIN GLARGINE
     Indication: DIABETES MELLITUS
     Dosage: UNK
     Route: 048
  5. CELEBREX [Concomitant]
     Active Substance: CELECOXIB
     Indication: ARTHRITIS
     Dosage: 200 MG, QD
     Route: 048
  6. DOXAZOSIN [Concomitant]
     Active Substance: DOXAZOSIN\DOXAZOSIN MESYLATE
     Indication: HYPERTENSION
     Dosage: 4 MG, BID
     Route: 048
  7. EMPAGLIFLOZIN [Concomitant]
     Active Substance: EMPAGLIFLOZIN
     Indication: DIABETES MELLITUS
     Dosage: 10 MG, QD
     Route: 048
  8. LOSARTAN. [Concomitant]
     Active Substance: LOSARTAN
     Indication: HYPERTENSION
     Dosage: 100 MG, QD
     Route: 048
  9. NIFEDIPINE. [Concomitant]
     Active Substance: NIFEDIPINE
     Indication: CARDIOVASCULAR DISORDER
     Dosage: 20 MG, BID
     Route: 048
  10. BLINDED LIXISENATIDE [Suspect]
     Active Substance: LIXISENATIDE
     Indication: MUSCULOSKELETAL STIFFNESS
     Dosage: UNK UNK, QD
     Route: 058
     Dates: start: 20180717
  11. METFORMIN [Concomitant]
     Active Substance: METFORMIN HYDROCHLORIDE
     Indication: DIABETES MELLITUS
     Dosage: 1 G, BID
     Route: 048
  12. BLINDED LIXISENATIDE [Suspect]
     Active Substance: LIXISENATIDE
     Indication: MUSCULOSKELETAL STIFFNESS
     Dosage: UNK UNK, QD
     Route: 058
     Dates: start: 20180717
  13. NASOBEC [Concomitant]
     Active Substance: BECLOMETHASONE DIPROPIONATE
     Indication: HYPERSENSITIVITY
     Dosage: 50 UG
  14. BLINDED LIXISENATIDE [Suspect]
     Active Substance: LIXISENATIDE
     Indication: MUSCULOSKELETAL STIFFNESS
     Dosage: UNK UNK, QD
     Route: 058
     Dates: start: 20180717
  15. OMEPRAZOLE. [Concomitant]
     Active Substance: OMEPRAZOLE
     Indication: GASTROINTESTINAL DISORDER
     Dosage: 10 MG, QD
     Route: 048
  16. BLINDED PLACEBO [Suspect]
     Active Substance: INVESTIGATIONAL PRODUCT
     Indication: MUSCULOSKELETAL STIFFNESS
     Dosage: UNK UNK, QD
     Route: 058
     Dates: start: 20180717
  17. HUMALOG [Concomitant]
     Active Substance: INSULIN LISPRO
     Indication: DIABETES MELLITUS
     Dosage: 30U-20U-20U, TID
     Route: 058
  18. LIRAGLUTIDE [Concomitant]
     Active Substance: LIRAGLUTIDE
     Indication: DIABETES MELLITUS
     Dosage: UNK
     Route: 058
     Dates: start: 2005, end: 201807
  19. TRAMADOL. [Concomitant]
     Active Substance: TRAMADOL
     Indication: NERVOUS SYSTEM DISORDER
     Dosage: 50 MG
     Route: 048

REACTIONS (1)
  - Acute coronary syndrome [Not Recovered/Not Resolved]

NARRATIVE: CASE EVENT DATE: 20180914
